FAERS Safety Report 16663211 (Version 1)
Quarter: 2019Q3

REPORT INFORMATION
  Report Type: Report from Study
  Country: US (occurrence: US)
  Receive Date: 20190802
  Receipt Date: 20190802
  Transmission Date: 20191004
  Serious: No
  Sender: FDA-Public Use
  Company Number: US-EXELIXIS-CABO-19020839

PATIENT
  Sex: Male

DRUGS (1)
  1. CABOMETYX [Suspect]
     Active Substance: CABOZANTINIB S-MALATE
     Indication: KAPOSI^S SARCOMA
     Dosage: 60 MG, QD

REACTIONS (5)
  - Prostate cancer [Unknown]
  - Fatigue [Recovering/Resolving]
  - Bone lesion [Unknown]
  - Diarrhoea [Unknown]
  - Off label use [Unknown]
